FAERS Safety Report 9206401 (Version 1)
Quarter: 2013Q2

REPORT INFORMATION
  Report Type: Spontaneous
  Country: US (occurrence: US)
  Receive Date: 20130403
  Receipt Date: 20130403
  Transmission Date: 20140414
  Serious: Yes (Other)
  Sender: FDA-Public Use
  Company Number: PHEH2013US000990

PATIENT
  Sex: Female

DRUGS (18)
  1. RECLAST [Suspect]
     Dosage: UNK
     Route: 042
     Dates: start: 20120918
  2. PREDNISONE [Suspect]
  3. AMLODIPINE [Concomitant]
  4. HCT [Concomitant]
  5. ARMOUR THYROID [Concomitant]
  6. PRILOSEC [Concomitant]
  7. LORTADINE [Concomitant]
  8. LISINOPRIL [Concomitant]
  9. SIMVASTATIN [Concomitant]
  10. ZANTAC [Concomitant]
  11. METOPROLOL [Concomitant]
  12. FUROSEMIDE [Concomitant]
  13. TYLENOL [Concomitant]
  14. B-12 [Concomitant]
  15. CALCIUM + VITAMIN D [Concomitant]
  16. MULTI-VIT [Concomitant]
  17. ASPIRIN [Concomitant]
  18. FOLIC ACID [Concomitant]

REACTIONS (5)
  - Joint dislocation [Unknown]
  - Cardiac flutter [Unknown]
  - Swelling face [Unknown]
  - Pain [Unknown]
  - Pyrexia [Unknown]
